FAERS Safety Report 7948988-6 (Version None)
Quarter: 2011Q4

REPORT INFORMATION
  Report Type: 
  Country: None (occurrence: None)
  Receive Date: 20111130
  Receipt Date: 20111125
  Transmission Date: 20120403
  Serious: Yes (Hospitalization, Other)
  Sender: FDA-Public Use
  Company Number: DE-PFIZER INC-2011288019

PATIENT
  Age: 69 Year
  Sex: Female

DRUGS (9)
  1. AMLODIPINE BESYLATE [Suspect]
     Dosage: 10 MG, 1X/DAY
     Route: 048
  2. DIOVAN [Concomitant]
     Dosage: 320 MG, 1X/DAY
     Route: 048
  3. LITHIUM CARBONATE [Interacting]
     Dosage: 900 MG, 1X/DAY
     Route: 048
     Dates: end: 20110401
  4. PANTOPRAZOLE SODIUM [Concomitant]
     Dosage: 40 MG, 1X/DAY
     Route: 048
  5. HYDROCHLOROTHIAZIDE [Interacting]
     Dosage: 25 MG, 1X/DAY
     Route: 048
     Dates: end: 20110328
  6. LEVOTHYROXINE SODIUM [Concomitant]
     Dosage: 50 UG, 1X/DAY
     Route: 048
  7. JODID [Concomitant]
     Dosage: 150 MG, 1X/DAY
     Route: 048
  8. ASPIRIN [Interacting]
     Dosage: 100 MG, 1X/DAY
     Route: 048
  9. METOPROLOL SUCCINATE [Concomitant]
     Dosage: 95 MG, 1X/DAY
     Route: 048

REACTIONS (7)
  - POISONING [None]
  - DEPRESSED MOOD [None]
  - DEPRESSED LEVEL OF CONSCIOUSNESS [None]
  - CLONUS [None]
  - HEADACHE [None]
  - DRUG INTERACTION [None]
  - TREMOR [None]
